FAERS Safety Report 25129471 (Version 1)
Quarter: 2025Q1

REPORT INFORMATION
  Report Type: Spontaneous
  Country: US (occurrence: US)
  Receive Date: 20250327
  Receipt Date: 20250327
  Transmission Date: 20250409
  Serious: No
  Sender: PFIZER
  Company Number: US-PFIZER INC-202500064105

PATIENT
  Age: 59 Year
  Sex: Female

DRUGS (8)
  1. IBRANCE [Suspect]
     Active Substance: PALBOCICLIB
     Route: 048
     Dates: start: 20220615
  2. FENTANYL [Concomitant]
     Active Substance: FENTANYL
  3. CALCIUM\VITAMIN D [Concomitant]
     Active Substance: CALCIUM\VITAMIN D
  4. ONDANSETRON [Concomitant]
     Active Substance: ONDANSETRON
  5. FASLODEX [Concomitant]
     Active Substance: FULVESTRANT
  6. ZOMETA [Concomitant]
     Active Substance: ZOLEDRONIC ACID
  7. IBUPROFEN [Concomitant]
     Active Substance: IBUPROFEN
  8. OXYCODONE [Concomitant]
     Active Substance: OXYCODONE

REACTIONS (2)
  - Fatigue [Not Recovered/Not Resolved]
  - Full blood count abnormal [Not Recovered/Not Resolved]
